FAERS Safety Report 11406082 (Version 1)
Quarter: 2015Q3

REPORT INFORMATION
  Report Type: Spontaneous
  Country: US (occurrence: US)
  Receive Date: 20150821
  Receipt Date: 20150821
  Transmission Date: 20151125
  Serious: No
  Sender: FDA-Public Use
  Company Number: US-ASTRAZENECA-2015SE77486

PATIENT
  Age: 27203 Day
  Sex: Male
  Weight: 106.6 kg

DRUGS (19)
  1. CETIRIZINE [Concomitant]
     Active Substance: CETIRIZINE HYDROCHLORIDE
  2. DOXYCYCLINE. [Concomitant]
     Active Substance: DOXYCYCLINE
  3. SELENIUM SULFIDE. [Concomitant]
     Active Substance: SELENIUM SULFIDE
     Route: 061
  4. ALBUTEROL. [Concomitant]
     Active Substance: ALBUTEROL
  5. VITAMIN B12 [Concomitant]
     Active Substance: CYANOCOBALAMIN
  6. ASPIRIN. [Concomitant]
     Active Substance: ASPIRIN
  7. CYANOCOBALAMIN. [Concomitant]
     Active Substance: CYANOCOBALAMIN
  8. NORVASC [Concomitant]
     Active Substance: AMLODIPINE BESYLATE
  9. RESTORIL [Concomitant]
     Active Substance: TEMAZEPAM
  10. SIMVASTATIN. [Concomitant]
     Active Substance: SIMVASTATIN
  11. ATENOLOL. [Concomitant]
     Active Substance: ATENOLOL
  12. AVODART [Concomitant]
     Active Substance: DUTASTERIDE
  13. NITROGLYCERINE [Concomitant]
     Active Substance: NITROGLYCERIN
     Dosage: 0.2 UNKNOWN
  14. PROPANOL [Concomitant]
     Active Substance: PROPRANOLOL HYDROCHLORIDE
  15. AMLODIPINE [Concomitant]
     Active Substance: AMLODIPINE BESYLATE
  16. BYDUREON [Suspect]
     Active Substance: EXENATIDE
     Indication: TYPE 2 DIABETES MELLITUS
     Route: 058
  17. FENOFIBRATE. [Concomitant]
     Active Substance: FENOFIBRATE
  18. OMEPRAZOLE. [Concomitant]
     Active Substance: OMEPRAZOLE
  19. INSULIN [Concomitant]
     Active Substance: INSULIN NOS
     Dosage: 500 U, THREE TIMES A DAY

REACTIONS (4)
  - Injection site haemorrhage [Recovered/Resolved]
  - Intentional product misuse [Unknown]
  - Injection site pain [Unknown]
  - Product quality issue [Unknown]

NARRATIVE: CASE EVENT DATE: 20150810
